FAERS Safety Report 16926238 (Version 2)
Quarter: 2020Q2

REPORT INFORMATION
  Report Type: Spontaneous
  Country: FR (occurrence: FR)
  Receive Date: 20191016
  Receipt Date: 20200403
  Transmission Date: 20200713
  Serious: Yes (Hospitalization, Other)
  Sender: FDA-Public Use
  Company Number: FR-ABBVIE-19K-056-2965166-00

PATIENT
  Age: 24 Year
  Sex: Female
  Weight: 52 kg

DRUGS (5)
  1. INFLIXIMAB [Concomitant]
     Active Substance: INFLIXIMAB
     Indication: PRODUCT USED FOR UNKNOWN INDICATION
  2. HUMIRA [Suspect]
     Active Substance: ADALIMUMAB
     Indication: CROHN^S DISEASE
     Route: 058
     Dates: start: 201105, end: 201508
  3. HUMIRA [Suspect]
     Active Substance: ADALIMUMAB
     Indication: ENTEROCOLITIS
  4. IMUREL [Concomitant]
     Active Substance: AZATHIOPRINE SODIUM
  5. IMUREL [Concomitant]
     Active Substance: AZATHIOPRINE SODIUM
     Indication: PRODUCT USED FOR UNKNOWN INDICATION
     Route: 048
     Dates: start: 201504

REACTIONS (6)
  - Treatment failure [Unknown]
  - Abscess intestinal [Recovered/Resolved]
  - Liver abscess [Recovered/Resolved]
  - Therapeutic product effect incomplete [Unknown]
  - Fistula of small intestine [Recovered/Resolved]
  - Superinfection [Recovered/Resolved]

NARRATIVE: CASE EVENT DATE: 201508
